FAERS Safety Report 6772818-1 (Version None)
Quarter: 2010Q2

REPORT INFORMATION
  Report Type: 
  Country: None (occurrence: None)
  Receive Date: 20100616
  Receipt Date: 20100610
  Transmission Date: 20101027
  Serious: Yes (Other)
  Sender: FDA-Public Use
  Company Number: AR-BRISTOL-MYERS SQUIBB COMPANY-15143886

PATIENT
  Age: 51 Year
  Sex: Female

DRUGS (1)
  1. IXEMPRA KIT [Suspect]
     Dosage: RESTRED ON 09JUN10
     Route: 042
     Dates: start: 20100201

REACTIONS (1)
  - COMA [None]
